FAERS Safety Report 10196463 (Version 2)
Quarter: 2014Q2

REPORT INFORMATION
  Report Type: Spontaneous
  Country: JP (occurrence: JP)
  Receive Date: 20140527
  Receipt Date: 20140530
  Transmission Date: 20141212
  Serious: Yes (Other)
  Sender: FDA-Public Use
  Company Number: JP-JNJFOC-20140513630

PATIENT
  Age: 5 Decade
  Sex: Male
  Weight: 85 kg

DRUGS (9)
  1. REMICADE [Suspect]
     Indication: COLITIS ULCERATIVE
     Route: 042
     Dates: start: 20140304
  2. REMICADE [Suspect]
     Indication: COLITIS ULCERATIVE
     Dosage: 3RD DOSE
     Route: 042
     Dates: start: 20140403
  3. REMICADE [Suspect]
     Indication: COLITIS ULCERATIVE
     Dosage: 1ST DOSE (PREVIOUSLY REPORTED AS 5 MG/KG)
     Route: 042
     Dates: start: 20140218
  4. PENTASA [Concomitant]
     Indication: COLITIS ULCERATIVE
     Dosage: PR
     Route: 048
  5. PREDONINE [Concomitant]
     Indication: COLITIS ULCERATIVE
     Route: 065
     Dates: start: 20140304
  6. POLYFUL [Concomitant]
     Indication: COLITIS ULCERATIVE
     Route: 048
     Dates: start: 20140304
  7. MIYA-BM [Concomitant]
     Indication: FLATULENCE
     Dosage: 3 DF
     Route: 048
  8. FERROMIA [Concomitant]
     Indication: COLITIS ULCERATIVE
     Route: 048
     Dates: start: 20140403
  9. FERROMIA [Concomitant]
     Indication: ANAEMIA
     Route: 048
     Dates: start: 20140403

REACTIONS (1)
  - Blister [Recovering/Resolving]
